FAERS Safety Report 5321014-3 (Version None)
Quarter: 2007Q2

REPORT INFORMATION
  Report Type: 
  Country: None (occurrence: None)
  Receive Date: 20070215
  Receipt Date: 20060104
  Transmission Date: 20071010
  Serious: No
  Sender: FDA-Public Use
  Company Number: 06H-163-0304332-00

PATIENT
  Age: 71 Year
  Sex: Female
  Weight: 58 kg

DRUGS (4)
  1. PRECEDEX [Suspect]
     Indication: SEDATION
     Dosage: SEE IMAGE
     Route: 042
     Dates: start: 20060103, end: 20060103
  2. ATIVAN [Concomitant]
  3. DIPRIVAN [Concomitant]
  4. ANTIBIOTICS (ANTIBIOTICS) [Concomitant]

REACTIONS (3)
  - BLOOD PRESSURE DECREASED [None]
  - ERYTHEMA [None]
  - HEART RATE INCREASED [None]
